FAERS Safety Report 16824974 (Version 1)
Quarter: 2019Q3

REPORT INFORMATION
  Report Type: Spontaneous
  Country: US (occurrence: US)
  Receive Date: 20190919
  Receipt Date: 20190919
  Transmission Date: 20191005
  Serious: Yes (Hospitalization, Other)
  Sender: FDA-Public Use
  Company Number: US-MACLEODS PHARMACEUTICALS US LTD-MAC2019022965

PATIENT

DRUGS (4)
  1. ARIPIPRAZOLE  10 MG [Suspect]
     Active Substance: ARIPIPRAZOLE
     Indication: BIPOLAR I DISORDER
     Dosage: 10 MILLIGRAM, QD
     Route: 048
  2. LAMOTRIGINE. [Interacting]
     Active Substance: LAMOTRIGINE
     Dosage: 12.5 MILLIGRAM, BID
     Route: 048
  3. LAMOTRIGINE. [Interacting]
     Active Substance: LAMOTRIGINE
     Indication: BIPOLAR I DISORDER
     Dosage: UNK
     Route: 048
  4. ABILIFY MAINTENA [Interacting]
     Active Substance: ARIPIPRAZOLE
     Indication: BIPOLAR I DISORDER
     Dosage: 400 MILLIGRAM, INJECTION LONG ACTING ABILIFY MAINTENA
     Route: 065

REACTIONS (2)
  - Rash [Recovered/Resolved]
  - Drug interaction [Recovered/Resolved]
